FAERS Safety Report 5409969-X (Version None)
Quarter: 2007Q3

REPORT INFORMATION
  Report Type: 
  Country: None (occurrence: None)
  Receive Date: 20070809
  Receipt Date: 20070801
  Transmission Date: 20080115
  Serious: Yes (Death)
  Sender: FDA-Public Use
  Company Number: PFIZER INC-2007063384

PATIENT
  Sex: Male
  Weight: 50.9 kg

DRUGS (1)
  1. SUTENT [Suspect]
     Indication: MALIGNANT ASCITES
     Route: 048
     Dates: start: 20070724, end: 20070731

REACTIONS (1)
  - DEATH [None]
